FAERS Safety Report 7318654-9 (Version None)
Quarter: 2011Q1

REPORT INFORMATION
  Report Type: 
  Country: None (occurrence: None)
  Receive Date: 20110223
  Receipt Date: 20110223
  Transmission Date: 20110831
  Serious: Yes (Hospitalization, Disabling)
  Sender: FDA-Public Use
  Company Number: None

PATIENT
  Age: 36 Year
  Sex: Female
  Weight: 63.5036 kg

DRUGS (1)
  1. ABILIFY [Suspect]
     Indication: DEPRESSION
     Dosage: 2MG AND 5 MG QD PO
     Route: 048
     Dates: start: 20110103, end: 20110111

REACTIONS (13)
  - PANIC REACTION [None]
  - MUSCLE TWITCHING [None]
  - CRYING [None]
  - CHEST PAIN [None]
  - HEADACHE [None]
  - DISORIENTATION [None]
  - BLOOD PRESSURE INCREASED [None]
  - MUSCLE DISORDER [None]
  - SPEECH DISORDER [None]
  - DEPRESSION [None]
  - INSOMNIA [None]
  - FEELING DRUNK [None]
  - CONFUSIONAL STATE [None]
